FAERS Safety Report 8319325-2 (Version None)
Quarter: 2012Q2

REPORT INFORMATION
  Report Type: 
  Country: None (occurrence: None)
  Receive Date: 20120427
  Receipt Date: 20120424
  Transmission Date: 20120825
  Serious: No
  Sender: FDA-Public Use
  Company Number: US-BAYER-2012-041391

PATIENT
  Age: 75 Year
  Sex: Male
  Weight: 77 kg

DRUGS (9)
  1. NAPROXEN SODIUM [Suspect]
     Dosage: 1 U, BID
     Route: 048
     Dates: start: 20120417
  2. ASPIRIN [Concomitant]
  3. ZETIA [Concomitant]
  4. MULTI-VITAMINS [Concomitant]
  5. ASCORBIC ACID [Concomitant]
  6. VITAMIN D [Concomitant]
  7. FISH OIL [Concomitant]
  8. PRAVASTATIN [Concomitant]
  9. CALCIUM [Concomitant]

REACTIONS (1)
  - BLOOD PRESSURE INCREASED [None]
